FAERS Safety Report 9227303 (Version 1)
Quarter: 2013Q2

REPORT INFORMATION
  Report Type: Spontaneous
  Country: MX (occurrence: MX)
  Receive Date: 20130412
  Receipt Date: 20130412
  Transmission Date: 20140414
  Serious: Yes (Hospitalization, Other)
  Sender: FDA-Public Use
  Company Number: PHHY2013MX033669

PATIENT
  Age: 83 Year
  Sex: Male

DRUGS (5)
  1. ONBREZ [Suspect]
     Indication: CHRONIC OBSTRUCTIVE PULMONARY DISEASE
     Dosage: 150 UG, QD
     Dates: start: 20111226
  2. WARFARIN [Concomitant]
     Indication: COAGULOPATHY
     Dosage: UNK
     Dates: start: 201302
  3. LOSARTAN [Concomitant]
     Indication: CARDIAC DISORDER
     Dosage: UNK
     Dates: start: 201206
  4. PRAVASTATIN [Concomitant]
     Dosage: UNK
     Dates: start: 201212
  5. ACETYLSALICYLIC ACID [Concomitant]
     Indication: BLOOD TRIGLYCERIDES
     Dosage: UNK
     Dates: start: 201212

REACTIONS (3)
  - Prostate examination abnormal [Unknown]
  - Effusion [Recovered/Resolved]
  - Hypertension [Recovered/Resolved]
